FAERS Safety Report 8404731-8 (Version None)
Quarter: 2012Q2

REPORT INFORMATION
  Report Type: 
  Country: None (occurrence: None)
  Receive Date: 20120601
  Receipt Date: 20120529
  Transmission Date: 20120825
  Serious: No
  Sender: FDA-Public Use
  Company Number: US-PFIZER INC-2008075080

PATIENT
  Sex: Female
  Weight: 53.07 kg

DRUGS (2)
  1. CHANTIX [Suspect]
     Indication: SMOKING CESSATION THERAPY
     Dosage: UNK
     Route: 048
     Dates: start: 20080101
  2. CHANTIX [Suspect]
     Indication: TOBACCO ABUSE

REACTIONS (3)
  - RASH MACULAR [None]
  - DRUG INEFFECTIVE [None]
  - TOBACCO USER [None]
